FAERS Safety Report 7690293-X (Version None)
Quarter: 2011Q3

REPORT INFORMATION
  Report Type: 
  Country: None (occurrence: None)
  Receive Date: 20110818
  Receipt Date: 20110809
  Transmission Date: 20111222
  Serious: Yes (Other)
  Sender: FDA-Public Use
  Company Number: US-ELI_LILLY_AND_COMPANY-US201108004320

PATIENT
  Sex: Female

DRUGS (3)
  1. HUMALOG [Suspect]
     Indication: TYPE 1 DIABETES MELLITUS
     Dosage: UNK UNK, OTHER
     Dates: start: 19960101
  2. HUMALOG [Suspect]
     Dosage: UNK, OTHER
  3. LEVEMIR [Concomitant]
     Dosage: UNK

REACTIONS (8)
  - FALL [None]
  - EYE HAEMORRHAGE [None]
  - INJURY [None]
  - DRUG INEFFECTIVE [None]
  - CONTUSION [None]
  - HEAD INJURY [None]
  - BLINDNESS [None]
  - BLOOD GLUCOSE INCREASED [None]
